FAERS Safety Report 6973203-X (Version None)
Quarter: 2010Q3

REPORT INFORMATION
  Report Type: 
  Country: None (occurrence: None)
  Receive Date: 20100909
  Receipt Date: 20100831
  Transmission Date: 20110219
  Serious: Yes (Death, Hospitalization, Other)
  Sender: FDA-Public Use
  Company Number: CA-ROCHE-724024

PATIENT
  Age: 58 Year
  Sex: Male

DRUGS (4)
  1. TAMIFLU [Suspect]
     Indication: H1N1 INFLUENZA
     Route: 065
     Dates: start: 20090101, end: 20090101
  2. AMANTADINE [Suspect]
     Indication: H1N1 INFLUENZA
     Dosage: DRUG REPORTED AS AMANTIDINE
     Route: 065
     Dates: start: 20090101, end: 20090101
  3. CYCLOPHOSPHAMIDE [Concomitant]
     Indication: ANTI-NEUTROPHIL CYTOPLASMIC ANTIBODY POSITIVE VASCULITIS
     Dates: start: 20080101
  4. PREDNISONE [Concomitant]
     Indication: ANTI-NEUTROPHIL CYTOPLASMIC ANTIBODY POSITIVE VASCULITIS
     Dates: start: 20080101

REACTIONS (11)
  - ASPERGILLOSIS [None]
  - DRUG INEFFECTIVE [None]
  - DRUG RESISTANCE [None]
  - LYMPHOPENIA [None]
  - PANCYTOPENIA [None]
  - PATHOGEN RESISTANCE [None]
  - PNEUMONITIS [None]
  - RENAL FAILURE [None]
  - RESPIRATORY FAILURE [None]
  - SEPTIC SHOCK [None]
  - STAPHYLOCOCCAL INFECTION [None]
